FAERS Safety Report 5149159-1 (Version None)
Quarter: 2006Q4

REPORT INFORMATION
  Report Type: 
  Country: None (occurrence: None)
  Receive Date: 20061113
  Receipt Date: 20060817
  Transmission Date: 20070319
  Serious: No
  Sender: FDA-Public Use
  Company Number: US-GLAXOSMITHKLINE-A0617153A

PATIENT
  Sex: Male

DRUGS (8)
  1. COREG [Suspect]
     Dosage: 6.25MG TWICE PER DAY
     Route: 048
  2. LASIX [Concomitant]
  3. COZAAR [Concomitant]
  4. VYTORIN [Concomitant]
  5. WARFARIN SODIUM [Concomitant]
  6. ASPIRIN [Concomitant]
  7. POTASSIUM ACETATE [Concomitant]
  8. ZAROXOLYN [Concomitant]

REACTIONS (1)
  - WEIGHT INCREASED [None]
